FAERS Safety Report 4885185-5 (Version None)
Quarter: 2005Q4

REPORT INFORMATION
  Report Type: 
  Country: None (occurrence: None)
  Receive Date: 20051201
  Receipt Date: 20050906
  Transmission Date: 20060501
  Serious: No
  Sender: FDA-Public Use
  Company Number: 2005PV001830

PATIENT
  Age: 74 Year
  Sex: Female
  Weight: 87.0906 kg

DRUGS (13)
  1. BYETTA [Suspect]
     Indication: DIABETES MELLITUS NON-INSULIN-DEPENDENT
     Dosage: 5 MCG; BID; SC
     Route: 058
     Dates: start: 20050902
  2. ZOCOR [Concomitant]
  3. TOPROL [Concomitant]
  4. FOLTX [Concomitant]
  5. FUROSEMIDE [Concomitant]
  6. PRILOSEC [Concomitant]
  7. FOLIC ACID [Concomitant]
  8. POTASSIUM CHLORIDE [Concomitant]
  9. TRIAMTERENE [Concomitant]
  10. METAGLIP [Concomitant]
  11. HUMALOG [Concomitant]
  12. FORMOTEROL/ BUDESONIDE [Concomitant]
  13. ASPIRIN [Concomitant]

REACTIONS (5)
  - BLOOD GLUCOSE DECREASED [None]
  - BLOOD GLUCOSE INCREASED [None]
  - DISORIENTATION [None]
  - DIZZINESS [None]
  - HYPERHIDROSIS [None]
